FAERS Safety Report 7745169-6 (Version None)
Quarter: 2011Q3

REPORT INFORMATION
  Report Type: 
  Country: None (occurrence: None)
  Receive Date: 20110907
  Receipt Date: 20110824
  Transmission Date: 20111222
  Serious: Yes (Hospitalization)
  Sender: FDA-Public Use
  Company Number: 1000022955

PATIENT
  Age: 78 Year
  Sex: Female

DRUGS (4)
  1. ESCITALOPRAM OXALATE [Suspect]
     Indication: DEPRESSION
     Dosage: 20 MG (20 MG, 1 IN 1 D), ORAL
     Route: 048
  2. VOLTAREN [Suspect]
     Indication: UPPER LIMB FRACTURE
  3. DALACIN (CLINDAMYCIN) (CLINDAMYCIN) [Concomitant]
  4. ASPIRIN [Suspect]
     Dosage: 75 MG (75 MG, 1 IN 1 D), ORAL
     Route: 048

REACTIONS (3)
  - MELAENA [None]
  - OESOPHAGEAL ULCER [None]
  - GASTRODUODENAL ULCER [None]
